FAERS Safety Report 11626463 (Version 1)
Quarter: 2015Q4

REPORT INFORMATION
  Report Type: Spontaneous
  Country: US (occurrence: US)
  Receive Date: 20151013
  Receipt Date: 20151013
  Transmission Date: 20160304
  Serious: No
  Sender: FDA-Public Use
  Company Number: US-ROCHE-1486452

PATIENT
  Sex: Male

DRUGS (1)
  1. ZELBORAF [Suspect]
     Active Substance: VEMURAFENIB
     Indication: MALIGNANT MELANOMA
     Dosage: 4 TABS IN AM AND PM
     Route: 065

REACTIONS (3)
  - Anxiety [Recovered/Resolved]
  - Skin papilloma [Recovering/Resolving]
  - Amnesia [Not Recovered/Not Resolved]
